FAERS Safety Report 13965433 (Version 2)
Quarter: 2017Q3

REPORT INFORMATION
  Report Type: Other
  Country: US (occurrence: US)
  Receive Date: 20170913
  Receipt Date: 20170914
  Transmission Date: 20171128
  Serious: No
  Sender: FDA-Public Use
  Company Number: US-IDENTI PHARMACEUTICALS LLC -2026021

PATIENT
  Age: 64 Year
  Sex: Female
  Weight: 56.36 kg

DRUGS (7)
  1. FINASTERIDE. [Concomitant]
     Active Substance: FINASTERIDE
  2. NEURONTIN [Concomitant]
     Active Substance: GABAPENTIN
  3. TRAMADOL ER [Concomitant]
     Active Substance: TRAMADOL HYDROCHLORIDE
  4. SYNTHROID [Concomitant]
     Active Substance: LEVOTHYROXINE SODIUM
  5. FLUOXETINE [Concomitant]
     Active Substance: FLUOXETINE HYDROCHLORIDE
  6. HYDROXYZINE [Concomitant]
     Active Substance: HYDROXYZINE HYDROCHLORIDE
  7. FLUOCINOLONE ACETONIDE. [Suspect]
     Active Substance: FLUOCINOLONE ACETONIDE
     Indication: ALOPECIA
     Route: 061
     Dates: start: 20170619, end: 20170620

REACTIONS (8)
  - Therapeutic product ineffective [Unknown]
  - Insomnia [Unknown]
  - Asthenia [Unknown]
  - Product physical issue [Unknown]
  - Headache [Recovered/Resolved]
  - Product odour abnormal [Unknown]
  - Product substitution issue [Unknown]
  - Application site pain [Unknown]

NARRATIVE: CASE EVENT DATE: 20170619
